FAERS Safety Report 23465162 (Version 2)
Quarter: 2024Q1

REPORT INFORMATION
  Report Type: Spontaneous
  Country: US (occurrence: US)
  Receive Date: 20240201
  Receipt Date: 20240209
  Transmission Date: 20240410
  Serious: Yes (Death, Other)
  Sender: FDA-Public Use
  Company Number: US-SECURA BIO, INC.-2024-SECUR-US000006

PATIENT

DRUGS (1)
  1. COPIKTRA [Suspect]
     Active Substance: DUVELISIB
     Indication: Cutaneous T-cell lymphoma
     Dosage: 75 MG, BID
     Route: 048
     Dates: start: 202308

REACTIONS (5)
  - Disease progression [Fatal]
  - Pneumonia aspiration [Unknown]
  - Respiratory failure [Unknown]
  - Off label use [Unknown]
  - Product use in unapproved indication [Unknown]

NARRATIVE: CASE EVENT DATE: 20240113
